FAERS Safety Report 5397859-0 (Version None)
Quarter: 2007Q3

REPORT INFORMATION
  Report Type: 
  Country: None (occurrence: None)
  Receive Date: 20070726
  Receipt Date: 20070724
  Transmission Date: 20080115
  Serious: Yes (Other)
  Sender: FDA-Public Use
  Company Number: A0665673A

PATIENT
  Age: 56 Year
  Sex: Male

DRUGS (1)
  1. NICORETTE (MINT) [Suspect]
     Indication: SMOKING CESSATION THERAPY
     Dosage: 32MG PER DAY
     Route: 002

REACTIONS (5)
  - BLADDER DISORDER [None]
  - BLOOD CALCIUM INCREASED [None]
  - DRUG INEFFECTIVE [None]
  - INTENTIONAL DRUG MISUSE [None]
  - NEPHROLITHIASIS [None]
